FAERS Safety Report 20697419 (Version 2)
Quarter: 2022Q2

REPORT INFORMATION
  Report Type: Spontaneous
  Country: HU (occurrence: HU)
  Receive Date: 20220411
  Receipt Date: 20220416
  Transmission Date: 20220721
  Serious: Yes (Other)
  Sender: FDA-Public Use
  Company Number: HU-SUN PHARMACEUTICAL INDUSTRIES LTD-2017R1-144461

PATIENT
  Age: 27 Year
  Sex: Female
  Weight: 93 kg

DRUGS (6)
  1. LANTUS [Suspect]
     Active Substance: INSULIN GLARGINE
     Indication: Insulin-requiring type 2 diabetes mellitus
     Dosage: 60 DF,QD
     Route: 058
     Dates: start: 2014
  2. LANTUS [Suspect]
     Active Substance: INSULIN GLARGINE
     Dosage: 54 E
  3. INSULIN ASPART [Suspect]
     Active Substance: INSULIN ASPART
     Indication: Type 2 diabetes mellitus
     Dosage: AT A DOSAGE OF 15-15-15 E NOVORAPID
  4. INSULIN ASPART [Suspect]
     Active Substance: INSULIN ASPART
     Dosage: DOSE 18 E (UNITS)
  5. METFORMIN HYDROCHLORIDE [Suspect]
     Active Substance: METFORMIN HYDROCHLORIDE
     Indication: Insulin-requiring type 2 diabetes mellitus
     Dosage: 1000 MG,QD
     Route: 048
     Dates: start: 2014
  6. FOLIC ACID\INOSITOL [Suspect]
     Active Substance: FOLIC ACID\INOSITOL
     Indication: Polycystic ovaries
     Dosage: UNK UNK,BID
     Route: 048
     Dates: start: 201403

REACTIONS (4)
  - Exposure during pregnancy [Unknown]
  - Amniorrhexis [Unknown]
  - Abortion induced [Unknown]
  - Premature rupture of membranes [Recovered/Resolved]

NARRATIVE: CASE EVENT DATE: 20140101
